FAERS Safety Report 6496763-4 (Version None)
Quarter: 2009Q4

REPORT INFORMATION
  Report Type: 
  Country: None (occurrence: None)
  Receive Date: 20091211
  Receipt Date: 20091126
  Transmission Date: 20100525
  Serious: Yes (Hospitalization)
  Sender: FDA-Public Use
  Company Number: AUR-APL-2009-01394

PATIENT
  Age: 51 Year
  Sex: Male

DRUGS (6)
  1. PAROXETINE [Suspect]
  2. SERTRALINE HCI FILM-COATED TABLET [Suspect]
     Indication: DEPRESSED MOOD
     Dosage: ORAL
     Route: 048
  3. MILNACIPRAN [Suspect]
  4. LITHIUM [Suspect]
  5. NORTRIPTYLINE [Suspect]
  6. MAPROTILINE [Suspect]

REACTIONS (7)
  - ACTIVATION SYNDROME [None]
  - AGGRESSION [None]
  - DRUG INEFFECTIVE [None]
  - IRRITABILITY [None]
  - LISTLESS [None]
  - NO THERAPEUTIC RESPONSE [None]
  - WEIGHT DECREASED [None]
